FAERS Safety Report 24061181 (Version 3)
Quarter: 2024Q3

REPORT INFORMATION
  Report Type: Report from Study
  Country: AT (occurrence: AT)
  Receive Date: 20240708
  Receipt Date: 20240919
  Transmission Date: 20241017
  Serious: No
  Sender: PFIZER
  Company Number: AT-PFIZER INC-PV202400084380

PATIENT
  Age: 60 Year
  Sex: Female
  Weight: 80 kg

DRUGS (10)
  1. VINCRISTINE SULFATE [Suspect]
     Active Substance: VINCRISTINE SULFATE
     Indication: Diffuse large B-cell lymphoma
     Dosage: 2 MG, DAY 1
     Route: 042
  2. VINCRISTINE SULFATE [Suspect]
     Active Substance: VINCRISTINE SULFATE
     Dosage: 2 MG, DAY 2
     Route: 042
     Dates: start: 20230201
  3. RITUXIMAB [Suspect]
     Active Substance: RITUXIMAB
     Indication: Diffuse large B-cell lymphoma
     Dosage: 779.74 MG, DAY 1
     Route: 042
     Dates: start: 20230201
  4. RITUXIMAB [Suspect]
     Active Substance: RITUXIMAB
     Dosage: 797.23 MG, DAY 1
     Route: 042
  5. DOXORUBICIN HYDROCHLORIDE [Suspect]
     Active Substance: DOXORUBICIN HYDROCHLORIDE
     Indication: Diffuse large B-cell lymphoma
     Dosage: UNK
     Route: 042
     Dates: start: 20230201
  6. INVESTIGATIONAL PRODUCT [Suspect]
     Active Substance: INVESTIGATIONAL PRODUCT
     Indication: Diffuse large B-cell lymphoma
     Dosage: (TAFASITAMAB;PLACEBO)
     Route: 042
     Dates: start: 20230201
  7. INVESTIGATIONAL PRODUCT [Suspect]
     Active Substance: INVESTIGATIONAL PRODUCT
     Indication: Diffuse large B-cell lymphoma
     Dosage: UNK, 1X/DAY, LENALIDOMIDE;PLACEBO
     Route: 048
     Dates: start: 20230201
  8. PREDNISOLONE [Suspect]
     Active Substance: PREDNISOLONE
     Indication: Diffuse large B-cell lymphoma
     Dosage: 100 MG, DAY 1-5
     Route: 048
     Dates: start: 20230201
  9. CYCLOPHOSPHAMIDE [Suspect]
     Active Substance: CYCLOPHOSPHAMIDE
     Indication: Diffuse large B-cell lymphoma
     Dosage: 1594.45 MG, DAY 1
     Route: 042
     Dates: start: 20230201, end: 20230517
  10. CYCLOPHOSPHAMIDE [Suspect]
     Active Substance: CYCLOPHOSPHAMIDE
     Dosage: 1599.48 MG, DAY 2
     Route: 042
     Dates: start: 20230201

REACTIONS (2)
  - Second primary malignancy [Recovered/Resolved]
  - Lung adenocarcinoma [Recovered/Resolved]

NARRATIVE: CASE EVENT DATE: 20231219
